FAERS Safety Report 5072377-8 (Version None)
Quarter: 2006Q3

REPORT INFORMATION
  Report Type: 
  Country: None (occurrence: None)
  Receive Date: 20060802
  Receipt Date: 20060720
  Transmission Date: 20061208
  Serious: Yes (Other)
  Sender: FDA-Public Use
  Company Number: S06-CAN-03080-01

PATIENT
  Age: 74 Year
  Sex: Female

DRUGS (4)
  1. CELEXA [Suspect]
     Dosage: 30 MG QD PO
     Route: 048
     Dates: end: 20060613
  2. CELEXA [Suspect]
     Dosage: 10 MG QD PO
     Route: 048
     Dates: start: 20060613
  3. COUMADIN [Suspect]
     Dosage: 3 MG QD PO
     Route: 048
  4. CRANBERRY JUICE (VACCINIUM MACROCARPON) [Suspect]

REACTIONS (1)
  - INTERNATIONAL NORMALISED RATIO INCREASED [None]
